FAERS Safety Report 8004975-3 (Version None)
Quarter: 2011Q4

REPORT INFORMATION
  Report Type: 
  Country: None (occurrence: None)
  Receive Date: 20111223
  Receipt Date: 20111214
  Transmission Date: 20120403
  Serious: Yes (Other)
  Sender: FDA-Public Use
  Company Number: FR-JNJFOC-20111208348

PATIENT
  Sex: Male

DRUGS (2)
  1. ZYTIGA [Suspect]
     Indication: PROSTATE CANCER
     Route: 048
     Dates: start: 20111209
  2. ZYTIGA [Suspect]
     Dosage: FOR 1 MONTH APPROXIMATIVELY
     Route: 048
     Dates: start: 20111019

REACTIONS (2)
  - ANAEMIA [None]
  - THROMBOCYTOPENIA [None]
